FAERS Safety Report 18367981 (Version 4)
Quarter: 2020Q4

REPORT INFORMATION
  Report Type: Spontaneous
  Country: US (occurrence: US)
  Receive Date: 20201009
  Receipt Date: 20201217
  Transmission Date: 20210114
  Serious: No
  Sender: FDA-Public Use
  Company Number: US-SA-2020SA275497

PATIENT

DRUGS (1)
  1. LANTUS SOLOSTAR [Suspect]
     Active Substance: INSULIN GLARGINE
     Indication: TYPE 1 DIABETES MELLITUS
     Dosage: 13 IU, QD ( MORNING)
     Route: 065
     Dates: start: 2015

REACTIONS (2)
  - Device issue [Unknown]
  - Blood glucose increased [Unknown]
